FAERS Safety Report 8046827-9 (Version None)
Quarter: 2012Q1

REPORT INFORMATION
  Report Type: 
  Country: None (occurrence: None)
  Receive Date: 20120116
  Receipt Date: 20091113
  Transmission Date: 20120608
  Serious: No
  Sender: FDA-Public Use
  Company Number: 2009BI037462

PATIENT
  Age: 43 Year
  Sex: Female

DRUGS (1)
  1. TYSABRI [Suspect]
     Indication: MULTIPLE SCLEROSIS
     Route: 042
     Dates: start: 20091008

REACTIONS (7)
  - SPEECH DISORDER [None]
  - FATIGUE [None]
  - NERVOUS SYSTEM DISORDER [None]
  - ASTHENIA [None]
  - GAIT DISTURBANCE [None]
  - DYSARTHRIA [None]
  - CONFUSIONAL STATE [None]
